FAERS Safety Report 24648551 (Version 1)
Quarter: 2024Q4

REPORT INFORMATION
  Report Type: Spontaneous
  Country: US (occurrence: US)
  Receive Date: 20241121
  Receipt Date: 20241121
  Transmission Date: 20250115
  Serious: Yes (Other)
  Sender: BRISTOL-MYERS SQUIBB COMPANY
  Company Number: US-BRISTOL-MYERS SQUIBB COMPANY-2024-181888

PATIENT
  Age: 72 Year
  Sex: Male
  Weight: 73.4 kg

DRUGS (4)
  1. ELIQUIS [Suspect]
     Active Substance: APIXABAN
     Indication: Atrial fibrillation
     Dosage: TAKE 1 TABLET (5 MG) BY MOUTH IN THE MORNING AND 1 TABLET (5 MG) IN THE EVENING
     Route: 048
     Dates: start: 20230108
  2. LIPITOR [Concomitant]
     Active Substance: ATORVASTATIN CALCIUM
     Indication: Product used for unknown indication
     Dosage: TAKE 2 TABLETS (80 MG) BY MOUTH 1 (ONE) ?TIME EACH DAY
     Route: 048
  3. TIKOSYN [Concomitant]
     Active Substance: DOFETILIDE
     Indication: Product used for unknown indication
     Dosage: TAKE 1 CAPSULE (500 MCG) BY MOUTH IN?THE MORNING AND AT BEDTIME
     Route: 048
     Dates: start: 20231111, end: 20240313
  4. METOPROLOL SUCCINATE [Concomitant]
     Active Substance: METOPROLOL SUCCINATE
     Indication: Product used for unknown indication

REACTIONS (2)
  - Heart failure with preserved ejection fraction [Unknown]
  - Cardiac amyloidosis [Unknown]

NARRATIVE: CASE EVENT DATE: 20230123
